FAERS Safety Report 10900840 (Version 2)
Quarter: 2015Q2

REPORT INFORMATION
  Report Type: Spontaneous
  Country: US (occurrence: US)
  Receive Date: 20150310
  Receipt Date: 20150529
  Transmission Date: 20150821
  Serious: No
  Sender: FDA-Public Use
  Company Number: US-PFIZER INC-2015079710

PATIENT
  Age: 71 Year
  Sex: Female

DRUGS (1)
  1. IBRANCE [Suspect]
     Active Substance: PALBOCICLIB
     Indication: PANCREATIC CARCINOMA METASTATIC
     Dosage: 125 MG, 1X/DAY
     Dates: start: 201502, end: 20150424

REACTIONS (8)
  - Depression [Unknown]
  - Fatigue [Unknown]
  - Product use issue [Unknown]
  - Appetite disorder [Unknown]
  - Nausea [Unknown]
  - Pancreatic carcinoma metastatic [Unknown]
  - Amnesia [Unknown]
  - Disease progression [Unknown]

NARRATIVE: CASE EVENT DATE: 201502
